FAERS Safety Report 7620809-0 (Version None)
Quarter: 2011Q3

REPORT INFORMATION
  Report Type: 
  Country: None (occurrence: None)
  Receive Date: 20110719
  Receipt Date: 20110708
  Transmission Date: 20111222
  Serious: Yes (Other)
  Sender: FDA-Public Use
  Company Number: PHHY2011US63231

PATIENT
  Age: 55 Year
  Sex: Male

DRUGS (3)
  1. VALPROATE SODIUM [Suspect]
     Dosage: 500 MG, DAILY
  2. PRAMIPEXOLE DIHYDROCHLORIDE [Concomitant]
     Dosage: 1.5 MG, TID
  3. LEVODOPA [Concomitant]
     Dosage: 600 MG, DAILY

REACTIONS (1)
  - IMPULSE-CONTROL DISORDER [None]
